FAERS Safety Report 5690763-X (Version None)
Quarter: 2008Q2

REPORT INFORMATION
  Report Type: 
  Country: None (occurrence: None)
  Receive Date: 20080401
  Receipt Date: 20080319
  Transmission Date: 20081010
  Serious: Yes (Death, Congenital Anomaly)
  Sender: FDA-Public Use
  Company Number: A0683106A

PATIENT
  Sex: Male

DRUGS (4)
  1. PAXIL [Suspect]
     Indication: DEPRESSION
     Dosage: 25MG PER DAY
     Dates: start: 20000101, end: 20000801
  2. AMITRIPTYLINE HCL [Concomitant]
  3. AMBIEN [Concomitant]
  4. VITAMIN TAB [Concomitant]

REACTIONS (3)
  - DEATH [None]
  - DRUG EXPOSURE DURING PREGNANCY [None]
  - HYPOPLASTIC LEFT HEART SYNDROME [None]
